FAERS Safety Report 9848985 (Version 1)
Quarter: 2013Q4

REPORT INFORMATION
  Report Type: Spontaneous
  Country: US (occurrence: None)
  Receive Date: 20131224
  Receipt Date: 20131224
  Transmission Date: 20140711
  Serious: Yes (Hospitalization)
  Sender: FDA-Public Use
  Company Number: PHEH2012US025581

PATIENT
  Sex: Male

DRUGS (3)
  1. MYFORTIC [Suspect]
     Indication: RENAL TRANSPLANT
     Route: 048
  2. NEORAL (CICLOSPORIN) [Concomitant]
  3. PROGRAF (TACROLIMUS) [Concomitant]

REACTIONS (3)
  - Escherichia infection [None]
  - Kidney transplant rejection [None]
  - Pain [None]
